FAERS Safety Report 5648711-4 (Version None)
Quarter: 2008Q1

REPORT INFORMATION
  Report Type: 
  Country: None (occurrence: None)
  Receive Date: 20080303
  Receipt Date: 20080303
  Transmission Date: 20080703
  Serious: Yes (Other)
  Sender: FDA-Public Use
  Company Number: None

PATIENT
  Age: 45 Year
  Sex: Female
  Weight: 90.7194 kg

DRUGS (3)
  1. CAPZASIN HP CAPSAICIN 0.1% CHATTEM INC. [Suspect]
     Indication: ARTHRALGIA
     Dosage: APPLY TO AFFECTED AREA 3 TO 4 TIMES DAILY TOP ONE APPLICATION ONLY
     Route: 061
     Dates: start: 20080216, end: 20080216
  2. CAPZASIN HP CAPSAICIN 0.1% CHATTEM INC. [Suspect]
     Indication: CONTUSION
     Dosage: APPLY TO AFFECTED AREA 3 TO 4 TIMES DAILY TOP ONE APPLICATION ONLY
     Route: 061
     Dates: start: 20080216, end: 20080216
  3. CAPZASIN HP CAPSAICIN 0.1% CHATTEM INC. [Suspect]
     Indication: MYALGIA
     Dosage: APPLY TO AFFECTED AREA 3 TO 4 TIMES DAILY TOP ONE APPLICATION ONLY
     Route: 061
     Dates: start: 20080216, end: 20080216

REACTIONS (2)
  - APPLICATION SITE IRRITATION [None]
  - INSOMNIA [None]
